FAERS Safety Report 7204347-5 (Version None)
Quarter: 2010Q4

REPORT INFORMATION
  Report Type: 
  Country: None (occurrence: None)
  Receive Date: 20101230
  Receipt Date: 20101222
  Transmission Date: 20110411
  Serious: Yes (Other)
  Sender: FDA-Public Use
  Company Number: JP-ROCHE-750549

PATIENT
  Age: 61 Year
  Sex: Female

DRUGS (11)
  1. AVASTIN [Suspect]
     Indication: RECTAL CANCER RECURRENT
     Dosage: NOTE: DOSAGE IS UNCERTAIN
     Route: 041
     Dates: start: 20080401
  2. ERBITUX [Suspect]
     Indication: COLON CANCER METASTATIC
     Route: 041
     Dates: start: 20080801
  3. ELPLAT [Concomitant]
     Dosage: NOTE: DOSAGE IS UNCERTAIN
     Route: 041
     Dates: start: 20080401
  4. FLUOROURACIL [Concomitant]
     Dosage: ROUTE INTRAVENOUS BOLUS, NOTE: DOSAGE IS UNCERTAIN
     Route: 042
     Dates: start: 20080401
  5. FLUOROURACIL [Concomitant]
     Dosage: ROUTE INTRAVENOUS DRIP, NOTE: DOSAGE IS UNCERTAIN
     Route: 042
     Dates: start: 20080401
  6. FLUOROURACIL [Concomitant]
     Dosage: ROUTE INTRAVENOUS BOLUS, NOTE: DOSAGE IS UNCERTAIN
     Route: 042
     Dates: start: 20080501
  7. FLUOROURACIL [Concomitant]
     Dosage: ROUTE INTRAVENOUS DRIP, NOTE: DOSAGE IS UNCERTAIN
     Route: 042
     Dates: start: 20080501
  8. FLUOROURACIL [Concomitant]
     Dosage: ROUTE INTRAARTERIAL
     Route: 042
     Dates: start: 20081101
  9. LEVOFOLINATE [Concomitant]
     Dosage: ROUTE INTRAVENOUS DRIP, DOSE IS UNCERTAIN
     Route: 041
     Dates: start: 20080401
  10. LEVOFOLINATE [Concomitant]
     Dosage: ROUTE INTRAVENOUS DRIP, NOTE: DOSAGE IS UNCERTAIN
     Route: 041
     Dates: start: 20080501
  11. IRINOTECAN HYDROCHLORIDE [Concomitant]
     Dosage: NOTE: DOSAGE IS UNCERTAIN
     Route: 041
     Dates: start: 20080501

REACTIONS (4)
  - ANAEMIA [None]
  - CHOLANGITIS [None]
  - DERMATITIS ACNEIFORM [None]
  - MALAISE [None]
